FAERS Safety Report 8447609-6 (Version None)
Quarter: 2012Q2

REPORT INFORMATION
  Report Type: 
  Country: None (occurrence: None)
  Receive Date: 20120619
  Receipt Date: 20120613
  Transmission Date: 20120825
  Serious: Yes (Hospitalization)
  Sender: FDA-Public Use
  Company Number: CH-PFIZER INC-2012139788

PATIENT
  Age: 70 Year
  Sex: Female

DRUGS (1)
  1. AXITINIB [Suspect]
     Indication: RENAL CANCER METASTATIC
     Dosage: 10 MG, 1X/DAY
     Route: 048
     Dates: end: 20120608

REACTIONS (5)
  - THROMBOCYTOPENIA [None]
  - LIVER FUNCTION TEST ABNORMAL [None]
  - STOMATITIS [None]
  - ASTHENIA [None]
  - CHOLECYSTITIS [None]
